FAERS Safety Report 8790369 (Version 1)
Quarter: 2012Q4

REPORT INFORMATION
  Report Type: 
  Country: SE (occurrence: SE)
  Receive Date: 20120917
  Receipt Date: 20120917
  Transmission Date: 20130627
  Serious: Yes (Hospitalization)
  Sender: FDA-Public Use
  Company Number: SE-JNJFOC-20120904932

PATIENT
  Age: 55 Year
  Sex: Male

DRUGS (4)
  1. REMICADE [Suspect]
     Indication: CROHN^S DISEASE
     Route: 042
     Dates: start: 20120717
  2. REMICADE [Suspect]
     Indication: CROHN^S DISEASE
     Route: 042
     Dates: start: 20111206
  3. CALCICHEW-D3 [Concomitant]
     Route: 065
  4. PURI-NETHOL [Concomitant]
     Route: 065

REACTIONS (1)
  - Pericarditis [Not Recovered/Not Resolved]
